FAERS Safety Report 9954374 (Version 3)
Quarter: 2017Q1

REPORT INFORMATION
  Report Type: Report from Study
  Country: None (occurrence: US)
  Receive Date: 20140304
  Receipt Date: 20170213
  Transmission Date: 20170429
  Serious: Yes (Other)
  Sender: FDA-Public Use
  Company Number: US-ABBVIE-14P-163-1207915-00

PATIENT
  Sex: Female

DRUGS (1)
  1. CREON [Suspect]
     Active Substance: PANCRELIPASE AMYLASE\PANCRELIPASE LIPASE\PANCRELIPASE PROTEASE
     Indication: PANCREATIC INSUFFICIENCY
     Route: 065

REACTIONS (15)
  - Flatulence [Unknown]
  - Diabetes mellitus [Unknown]
  - Pain [Recovering/Resolving]
  - Pancreatic cyst [Unknown]
  - Dyspepsia [Not Recovered/Not Resolved]
  - Malaise [Unknown]
  - Depression [Unknown]
  - Impaired healing [Recovered/Resolved]
  - Eructation [Not Recovered/Not Resolved]
  - Pyrexia [Unknown]
  - Emotional disorder [Unknown]
  - Apparent death [Unknown]
  - Gastrointestinal disorder [Unknown]
  - Food intolerance [Unknown]
  - Pancreatitis [Unknown]
